FAERS Safety Report 8954582 (Version 1)
Quarter: 2012Q4

REPORT INFORMATION
  Report Type: 
  Country: JP (occurrence: JP)
  Receive Date: 20121210
  Receipt Date: 20121210
  Transmission Date: 20130627
  Serious: Yes (Hospitalization, Other)
  Sender: FDA-Public Use
  Company Number: PHHY2012JP092786

PATIENT
  Age: 42 Year
  Sex: Female

DRUGS (7)
  1. CARBAMAZEPINE [Suspect]
     Indication: EPILEPSY
  2. VALPROIC ACID [Suspect]
     Indication: EPILEPSY
  3. PHENYTOIN [Suspect]
     Indication: EPILEPSY
     Dosage: 300 mg, UNK
  4. PHENYTOIN [Suspect]
     Dosage: 225 mg, UNK
  5. PHENYTOIN [Suspect]
     Dosage: 75 mg, UNK
  6. PHENOBARBITAL [Suspect]
     Indication: EPILEPSY
     Dosage: 100 mg, UNK
  7. HYDANTOL [Suspect]

REACTIONS (6)
  - Cerebellar ataxia [Unknown]
  - Nystagmus [Recovering/Resolving]
  - Eye movement disorder [Recovering/Resolving]
  - Dizziness [Recovering/Resolving]
  - Epilepsy [Unknown]
  - Anticonvulsant drug level increased [Unknown]
